FAERS Safety Report 21160191 (Version 3)
Quarter: 2022Q3

REPORT INFORMATION
  Report Type: Spontaneous
  Country: CZ (occurrence: CZ)
  Receive Date: 20220802
  Receipt Date: 20220816
  Transmission Date: 20221027
  Serious: Yes (Other)
  Sender: FDA-Public Use
  Company Number: CZ-002147023-NVSC2022CZ171051

PATIENT
  Age: 33 Year
  Sex: Female

DRUGS (2)
  1. INTERFERON BETA-1B [Suspect]
     Active Substance: INTERFERON BETA-1B
     Indication: Multiple sclerosis
     Dosage: 250 MG, Q8HR
     Route: 058
     Dates: start: 200412
  2. AZATHIOPRINE [Suspect]
     Active Substance: AZATHIOPRINE
     Indication: Multiple sclerosis
     Dosage: UNK
     Route: 065
     Dates: start: 200412

REACTIONS (2)
  - Relapsing multiple sclerosis [Unknown]
  - Progressive relapsing multiple sclerosis [Unknown]

NARRATIVE: CASE EVENT DATE: 20110501
